FAERS Safety Report 7211542-8 (Version None)
Quarter: 2010Q4

REPORT INFORMATION
  Report Type: 
  Country: None (occurrence: None)
  Receive Date: 20101228
  Receipt Date: 20101217
  Transmission Date: 20110411
  Serious: Yes (Hospitalization, Other)
  Sender: FDA-Public Use
  Company Number: 023790

PATIENT
  Age: 47 Year
  Sex: Female

DRUGS (2)
  1. KEPPRA [Suspect]
     Indication: EPILEPSY
     Dosage: 150 MG,
     Dates: start: 20101210, end: 20101213
  2. DAFALGAN [Concomitant]

REACTIONS (1)
  - RHABDOMYOLYSIS [None]
